FAERS Safety Report 7415073-1 (Version None)
Quarter: 2011Q2

REPORT INFORMATION
  Report Type: 
  Country: None (occurrence: None)
  Receive Date: 20110414
  Receipt Date: 20110406
  Transmission Date: 20111010
  Serious: Yes (Hospitalization)
  Sender: FDA-Public Use
  Company Number: FR-ROCHE-770105

PATIENT
  Sex: Male

DRUGS (2)
  1. TAMIFLU [Suspect]
     Route: 048
     Dates: start: 20100222, end: 20100227
  2. COAPROVEL [Concomitant]
     Indication: HYPERTENSION
     Dosage: DURATION: 4 YEAR
     Route: 048

REACTIONS (1)
  - BRAIN NEOPLASM [None]
